FAERS Safety Report 6522404-3 (Version None)
Quarter: 2009Q4

REPORT INFORMATION
  Report Type: 
  Country: None (occurrence: None)
  Receive Date: 20091230
  Receipt Date: 20091217
  Transmission Date: 20100525
  Serious: Yes (Hospitalization)
  Sender: FDA-Public Use
  Company Number: CZ-AMGEN-US374547

PATIENT
  Age: 65 Year
  Sex: Female

DRUGS (15)
  1. ENBREL [Suspect]
     Indication: PSORIATIC ARTHROPATHY
     Route: 058
     Dates: start: 20090918
  2. VIGANTOL [Concomitant]
     Dosage: UNKNOWN
     Route: 048
  3. RIVOTRIL [Concomitant]
     Dosage: UNKNOWN
  4. SIMVASTATIN [Concomitant]
     Dosage: UNKNOWN
     Route: 048
  5. PROTELOS [Concomitant]
     Dosage: 2G
     Route: 048
  6. MEDROL [Concomitant]
     Dosage: UNKNOWN
     Route: 048
  7. CALCIUM CARBONATE [Concomitant]
     Dosage: UNKNOWN
     Route: 048
  8. METHOTREXATE [Concomitant]
     Route: 065
  9. PLENDIL [Concomitant]
     Dosage: UNKNOWN
     Route: 048
  10. LEVOTHYROXINE SODIUM [Concomitant]
     Dosage: UNKNOWN
     Route: 048
  11. SEREVENT [Concomitant]
     Route: 065
  12. SPIRIVA [Concomitant]
     Route: 065
  13. SERETIDE [Concomitant]
     Route: 065
  14. BETOPTIC [Concomitant]
     Dosage: UNKNOWN
     Route: 047
  15. OMEPRAZOLE [Concomitant]
     Dosage: UNKNOWN
     Route: 065

REACTIONS (1)
  - SYNCOPE [None]
